FAERS Safety Report 15563268 (Version 1)
Quarter: 2018Q4

REPORT INFORMATION
  Report Type: Spontaneous
  Country: ES (occurrence: ES)
  Receive Date: 20181029
  Receipt Date: 20181029
  Transmission Date: 20190205
  Serious: Yes (Other)
  Sender: FDA-Public Use
  Company Number: PHHY2018ES137875

PATIENT
  Age: 83 Year
  Sex: Female

DRUGS (15)
  1. LATANOPROST. [Concomitant]
     Active Substance: LATANOPROST
     Indication: CATARACT
     Dosage: 1 ?G/L, QD
     Route: 047
     Dates: start: 20120124
  2. FOSTER [Concomitant]
     Active Substance: BECLOMETHASONE\FORMOTEROL
     Indication: ASTHMA
     Dosage: 1 ?G/L, Q12H
     Route: 055
     Dates: start: 20120124
  3. QUETIAPINE. [Suspect]
     Active Substance: QUETIAPINE
     Indication: PERSISTENT DEPRESSIVE DISORDER
     Dosage: 1 ?G/L, QD
     Route: 065
     Dates: start: 20180903, end: 20181003
  4. LORMETAZEPAM [Concomitant]
     Active Substance: LORMETAZEPAM
     Indication: CEREBRAL ISCHAEMIA
     Dosage: 1 ?G/L, QD
     Route: 048
     Dates: start: 20170515
  5. PREGABALINA [Concomitant]
     Active Substance: PREGABALIN
     Indication: CERVICOBRACHIAL SYNDROME
     Dosage: 1 ?G/L, UNK
     Route: 048
  6. ALPRAZOLAM. [Concomitant]
     Active Substance: ALPRAZOLAM
     Indication: PRODUCT USED FOR UNKNOWN INDICATION
     Dosage: 1 ?G/L, Q8H
     Route: 054
     Dates: start: 20110506
  7. CETIRIZINA [Concomitant]
     Active Substance: CETIRIZINE HYDROCHLORIDE
     Indication: CEREBRAL ISCHAEMIA
     Dosage: 1 ?G/L, QD
     Route: 048
     Dates: start: 20120704
  8. TAPENTADOL [Concomitant]
     Active Substance: TAPENTADOL
     Indication: OSTEOARTHRITIS
     Dosage: 1 ?G/L, Q12H
     Route: 048
     Dates: start: 20180927
  9. TRYPTIZOL [Concomitant]
     Active Substance: AMITRIPTYLINE HYDROCHLORIDE
     Indication: PLASMA CELL MYELOMA
     Dosage: 1 ?G/L, QD
     Route: 048
     Dates: start: 20180119
  10. PANTOPRAZOL [Concomitant]
     Active Substance: PANTOPRAZOLE SODIUM
     Indication: GASTRITIS
     Dosage: 1 ?G/L, QD
     Route: 048
     Dates: start: 20151126
  11. VENLAFAXINA [Concomitant]
     Active Substance: VENLAFAXINE HYDROCHLORIDE
     Indication: PERSISTENT DEPRESSIVE DISORDER
     Dosage: 1 ?G/L, Q12H
     Route: 048
     Dates: start: 20110314
  12. PARACETAMOL MUNDOGEN [Concomitant]
     Indication: PLASMA CELL MYELOMA
     Dosage: 1 ?G/L, Q8H
     Route: 048
     Dates: start: 20180118
  13. CANDESARTAN. [Concomitant]
     Active Substance: CANDESARTAN
     Indication: PRODUCT USED FOR UNKNOWN INDICATION
     Dosage: 1 ?G/L, QD
     Route: 048
     Dates: start: 20111108
  14. EUTIROX [Concomitant]
     Active Substance: LEVOTHYROXINE SODIUM
     Indication: HYPOTHYROIDISM
     Dosage: 1 ?G/L, QD
     Route: 048
     Dates: start: 20120125
  15. ACETYLSALICYLIC ACID [Concomitant]
     Active Substance: ASPIRIN
     Indication: DISEASE RISK FACTOR
     Dosage: 1 ?G/L, QD
     Route: 048
     Dates: start: 20120320

REACTIONS (2)
  - Oral mucosal erythema [Recovered/Resolved]
  - Pharyngeal enanthema [Recovered/Resolved]

NARRATIVE: CASE EVENT DATE: 20180927
